FAERS Safety Report 21871937 (Version 9)
Quarter: 2023Q2

REPORT INFORMATION
  Report Type: Spontaneous
  Country: US (occurrence: US)
  Receive Date: 20230117
  Receipt Date: 20230623
  Transmission Date: 20230722
  Serious: Yes (Hospitalization, Other)
  Sender: FDA-Public Use
  Company Number: US-PFIZER INC-PV202300007121

PATIENT
  Age: 70 Year
  Sex: Female

DRUGS (3)
  1. IBRANCE [Suspect]
     Active Substance: PALBOCICLIB
     Dosage: 100 MG
  2. IBRANCE [Suspect]
     Active Substance: PALBOCICLIB
     Dosage: 125 MG
  3. FASLODEX [Concomitant]
     Active Substance: FULVESTRANT
     Dosage: UNK

REACTIONS (34)
  - Dysphagia [Not Recovered/Not Resolved]
  - Odynophagia [Unknown]
  - Pneumonitis [Unknown]
  - Neoplasm progression [Unknown]
  - Brain fog [Unknown]
  - Headache [Unknown]
  - Neutrophil count decreased [Unknown]
  - White blood cell count decreased [Unknown]
  - Liver function test decreased [Unknown]
  - Renal function test abnormal [Unknown]
  - Fatigue [Not Recovered/Not Resolved]
  - Sensation of foreign body [Unknown]
  - Red blood cell count decreased [Not Recovered/Not Resolved]
  - Nasal congestion [Recovering/Resolving]
  - Cough [Unknown]
  - Haemoglobin decreased [Unknown]
  - Cytology abnormal [Unknown]
  - Pharyngeal inflammation [Unknown]
  - Constipation [Not Recovered/Not Resolved]
  - Feeling cold [Unknown]
  - Eructation [Not Recovered/Not Resolved]
  - Dry mouth [Unknown]
  - Hot flush [Unknown]
  - Gastrooesophageal reflux disease [Not Recovered/Not Resolved]
  - Skin disorder [Unknown]
  - Nail disorder [Unknown]
  - Productive cough [Unknown]
  - Platelet count decreased [Unknown]
  - Back pain [Unknown]
  - Chest pain [Unknown]
  - Full blood count abnormal [Unknown]
  - Spinal pain [Unknown]
  - Productive cough [Unknown]
  - Bone pain [Unknown]
